FAERS Safety Report 4598816-4 (Version None)
Quarter: 2005Q1

REPORT INFORMATION
  Report Type: 
  Country: None (occurrence: None)
  Receive Date: 20050302
  Receipt Date: 20050215
  Transmission Date: 20050727
  Serious: Yes (Other)
  Sender: FDA-Public Use
  Company Number: 21678

PATIENT
  Age: 60 Year
  Sex: Female
  Weight: 70.3075 kg

DRUGS (3)
  1. NIASPAN [Suspect]
     Indication: HIGH DENSITY LIPOPROTEIN DECREASED
     Dosage: 1000 MG QHS PO
     Route: 048
     Dates: start: 20001101, end: 20050105
  2. NIASPAN [Suspect]
     Indication: LOW DENSITY LIPOPROTEIN INCREASED
     Dosage: 1000 MG QHS PO
     Route: 048
     Dates: start: 20001101, end: 20050105
  3. SOY SUPPLEMENT [Concomitant]

REACTIONS (14)
  - DIZZINESS [None]
  - DRY EYE [None]
  - FALL [None]
  - FLUSHING [None]
  - HYPOAESTHESIA [None]
  - MUSCLE ATROPHY [None]
  - MUSCLE SPASMS [None]
  - MYALGIA [None]
  - NEUROPATHY [None]
  - NOCTURIA [None]
  - PAIN [None]
  - REFUSAL OF TREATMENT BY PATIENT [None]
  - ROTATOR CUFF SYNDROME [None]
  - TENDON INJURY [None]
